FAERS Safety Report 6867685-1 (Version None)
Quarter: 2010Q3

REPORT INFORMATION
  Report Type: 
  Country: None (occurrence: None)
  Receive Date: 20100722
  Receipt Date: 20100409
  Transmission Date: 20110219
  Serious: No
  Sender: FDA-Public Use
  Company Number: US-BAUSCH-2010BL001991

PATIENT
  Age: 42 Year
  Sex: Female

DRUGS (2)
  1. OPCON-A [Suspect]
     Indication: SEASONAL ALLERGY
     Route: 047
     Dates: start: 20100405, end: 20100406
  2. CLARITIN /USA/ [Concomitant]
     Indication: SEASONAL ALLERGY
     Route: 048
     Dates: start: 20100404

REACTIONS (1)
  - VISION BLURRED [None]
